FAERS Safety Report 4497404-8 (Version None)
Quarter: 2004Q4

REPORT INFORMATION
  Report Type: 
  Country: None (occurrence: None)
  Receive Date: 20041110
  Receipt Date: 20041028
  Transmission Date: 20050328
  Serious: Yes (Hospitalization)
  Sender: FDA-Public Use
  Company Number: PHBS2004JP14553

PATIENT
  Sex: Male

DRUGS (1)
  1. VOLTAREN [Suspect]
     Indication: ANALGESIC THERAPY
     Dosage: 1 SUPPOSITORY/DAY
     Route: 054
     Dates: start: 20041001, end: 20041001

REACTIONS (3)
  - HENOCH-SCHONLEIN PURPURA [None]
  - OEDEMA PERIPHERAL [None]
  - PAIN IN EXTREMITY [None]
